FAERS Safety Report 24394783 (Version 3)
Quarter: 2024Q4

REPORT INFORMATION
  Report Type: Spontaneous
  Country: US (occurrence: US)
  Receive Date: 20241004
  Receipt Date: 20241213
  Transmission Date: 20250115
  Serious: Yes (Other)
  Sender: REGENERON
  Company Number: US-REGENERON PHARMACEUTICALS, INC.-2024-109345

PATIENT
  Sex: Male

DRUGS (4)
  1. EYLEA [Suspect]
     Active Substance: AFLIBERCEPT
     Indication: Diabetic retinopathy
     Dosage: 2 MG, EVERY 2 MONTHS/ 8-9 WEEKS (AS NEEDED), TREATED IN BOTH EYES, FORMULATION: PFS GERRESHEIMER
     Dates: start: 20230913
  2. EYLEA [Suspect]
     Active Substance: AFLIBERCEPT
     Indication: Diabetic retinal oedema
     Dosage: 2 MG, EVERY 2 MONTHS/ 8-9 WEEKS (AS NEEDED), TREATED IN BOTH EYES, FORMULATION: PFS GERRESHEIMER
     Dates: start: 20231115, end: 20231115
  3. EYLEA [Suspect]
     Active Substance: AFLIBERCEPT
     Dosage: 2 MG, EVERY 2 MONTHS/ 8-9 WEEKS(AS NEEDED), RIGHT EYE, FORMULATION: PFS GERRESHEIMER
     Dates: start: 20240731, end: 20240731
  4. EYLEA [Suspect]
     Active Substance: AFLIBERCEPT
     Dosage: 2 MG, EVERY 2 MONTHS/ 8-9 WEEKS(AS NEEDED), LEFT EYE, FORMULATION: PFS GERRESHEIMER
     Dates: start: 20240731, end: 20240731

REACTIONS (7)
  - Vitreous haemorrhage [Recovered/Resolved]
  - Non-infectious endophthalmitis [Recovered/Resolved]
  - Vitritis [Recovered/Resolved]
  - Visual acuity reduced [Recovered/Resolved]
  - Cellulitis [Recovered/Resolved]
  - Tooth extraction [Recovered/Resolved]
  - Wrong technique in product usage process [Unknown]

NARRATIVE: CASE EVENT DATE: 20240807
